FAERS Safety Report 9831056 (Version 1)
Quarter: 2014Q1

REPORT INFORMATION
  Report Type: Other
  Country: AU (occurrence: AU)
  Receive Date: 20140120
  Receipt Date: 20140120
  Transmission Date: 20141002
  Serious: Yes (Death, Hospitalization)
  Sender: FDA-Public Use
  Company Number: AU-LUPIN PHARMACEUTICALS INC.-2014-00014

PATIENT
  Age: 59 Year
  Sex: Female

DRUGS (2)
  1. ISABELLE [Suspect]
     Indication: CONTRACEPTION
     Route: 065
  2. YASMIN [Suspect]
     Indication: CONTRACEPTION
     Route: 065
     Dates: start: 2005

REACTIONS (4)
  - Embolic stroke [Fatal]
  - Diarrhoea [Unknown]
  - Vomiting [Unknown]
  - Influenza [Unknown]
